FAERS Safety Report 21377765 (Version 1)
Quarter: 2022Q3

REPORT INFORMATION
  Report Type: Spontaneous
  Country: AU (occurrence: AU)
  Receive Date: 20220926
  Receipt Date: 20220926
  Transmission Date: 20221026
  Serious: Yes (Other)
  Sender: FDA-Public Use
  Company Number: AU-PHARMAAND-2022PHR00229

PATIENT
  Age: 82 Year
  Sex: Female

DRUGS (2)
  1. PEGASYS [Suspect]
     Active Substance: PEGINTERFERON ALFA-2A
     Indication: Product used for unknown indication
     Dosage: UNK
     Route: 058
  2. NILOTINIB [Suspect]
     Active Substance: NILOTINIB
     Indication: Product used for unknown indication
     Dosage: UNK

REACTIONS (5)
  - Pulmonary arterial hypertension [Unknown]
  - Cellulitis [Unknown]
  - Cardiac murmur [Unknown]
  - Fluid retention [Unknown]
  - Gait inability [Unknown]
